FAERS Safety Report 8772777 (Version 1)
Quarter: 2012Q4

REPORT INFORMATION
  Report Type: 
  Country: JP (occurrence: JP)
  Receive Date: 20120907
  Receipt Date: 20120907
  Transmission Date: 20130627
  Serious: Yes (Other)
  Sender: FDA-Public Use
  Company Number: JP-PFIZER INC-2012217619

PATIENT
  Age: 18 Year
  Sex: Female

DRUGS (1)
  1. NEO-MEDROL [Suspect]
     Dosage: UNK
     Route: 061

REACTIONS (1)
  - Intraocular pressure increased [Unknown]
